FAERS Safety Report 6614596-2 (Version None)
Quarter: 2010Q1

REPORT INFORMATION
  Report Type: 
  Country: None (occurrence: None)
  Receive Date: 20100226
  Receipt Date: 20100212
  Transmission Date: 20100710
  Serious: Yes (Hospitalization, Other)
  Sender: FDA-Public Use
  Company Number: KV200900793

PATIENT
  Age: 73 Year
  Sex: Female
  Weight: 81.6 kg

DRUGS (17)
  1. MORPHINE SULFATE [Suspect]
     Indication: PAIN
     Dosage: 60 MG, Q12H, ORAL
     Route: 048
     Dates: start: 20080203, end: 20080205
  2. OXYCODONE HCL [Suspect]
     Indication: PAIN
     Dosage: 5 MG (0.25 ML) Q6H, ORAL
     Route: 048
     Dates: start: 20080203, end: 20080205
  3. SALSALATE (SALSALATE) [Concomitant]
  4. ELAVIL /00002202/ (AMITRIPTYLINE HYDROCHLORIDE) [Concomitant]
  5. ZOLPIDEM [Concomitant]
  6. PROVENTIL /00139501/ (SALBUTAMOL) [Concomitant]
  7. ALLEGRA /01314201/ (FEXOFENADINE) [Concomitant]
  8. NEXIUM [Concomitant]
  9. SYNTHROID [Concomitant]
  10. LIPITOR [Concomitant]
  11. XALATAN /01297301/ (LATANOPROST) [Concomitant]
  12. ALLOPURINOL [Concomitant]
  13. TIZANIDINE HCL [Concomitant]
  14. LISINOPRIL [Concomitant]
  15. SUCRALFATE [Concomitant]
  16. KLONOPIN [Concomitant]
  17. ARICEPT /01318902/ (DONEPEZIL HYDROCHLORIDE) [Concomitant]

REACTIONS (27)
  - ABDOMINAL PAIN [None]
  - ACCIDENTAL OVERDOSE [None]
  - ALANINE AMINOTRANSFERASE INCREASED [None]
  - ANAEMIA [None]
  - ASPARTATE AMINOTRANSFERASE INCREASED [None]
  - ASPIRATION [None]
  - DEHYDRATION [None]
  - DIARRHOEA [None]
  - GASTROINTESTINAL HAEMORRHAGE [None]
  - HAEMATEMESIS [None]
  - HAEMORRHOIDS [None]
  - HIATUS HERNIA [None]
  - HYPOTENSION [None]
  - INCORRECT DRUG ADMINISTRATION DURATION [None]
  - LEUKOCYTOSIS [None]
  - MALAISE [None]
  - MALLORY-WEISS SYNDROME [None]
  - MUSCULAR WEAKNESS [None]
  - NAUSEA [None]
  - PYREXIA [None]
  - RECTAL HAEMORRHAGE [None]
  - RENAL FAILURE [None]
  - RESPIRATORY FAILURE [None]
  - SINUS TACHYCARDIA [None]
  - STUPOR [None]
  - UNRESPONSIVE TO STIMULI [None]
  - VOMITING [None]
